FAERS Safety Report 25688988 (Version 2)
Quarter: 2025Q3

REPORT INFORMATION
  Report Type: Report from Study
  Country: GB (occurrence: GB)
  Receive Date: 20250818
  Receipt Date: 20250822
  Transmission Date: 20251021
  Serious: Yes (Other)
  Sender: ROCHE
  Company Number: GB-ROCHE-3217122

PATIENT
  Sex: Female

DRUGS (7)
  1. TOCILIZUMAB [Suspect]
     Active Substance: TOCILIZUMAB
     Indication: Rheumatoid arthritis
     Route: 058
     Dates: start: 2021
  2. METHOTREXATE [Concomitant]
     Active Substance: METHOTREXATE
  3. APIXABAN [Concomitant]
     Active Substance: APIXABAN
  4. BETAHISTINE [Concomitant]
     Active Substance: BETAHISTINE
  5. PANTOPRAZOLE [Concomitant]
     Active Substance: PANTOPRAZOLE
  6. PRUCALOPRIDE [Concomitant]
     Active Substance: PRUCALOPRIDE
  7. TROPICAMIDE [Concomitant]
     Active Substance: TROPICAMIDE

REACTIONS (3)
  - Uterine disorder [Unknown]
  - Incontinence [Unknown]
  - Ill-defined disorder [Unknown]
